FAERS Safety Report 5364189-2 (Version None)
Quarter: 2007Q2

REPORT INFORMATION
  Report Type: 
  Country: None (occurrence: None)
  Receive Date: 20070620
  Receipt Date: 20070611
  Transmission Date: 20071010
  Serious: Yes (Other)
  Sender: FDA-Public Use
  Company Number: US-PFIZER INC-2007048464

PATIENT
  Sex: Female
  Weight: 63.636 kg

DRUGS (2)
  1. LIPITOR [Suspect]
     Indication: BLOOD CHOLESTEROL INCREASED
     Dosage: DAILY DOSE:40MG
  2. FOSAMAX [Concomitant]

REACTIONS (2)
  - PAIN IN EXTREMITY [None]
  - RHABDOMYOLYSIS [None]
